FAERS Safety Report 25590261 (Version 5)
Quarter: 2025Q4

REPORT INFORMATION
  Report Type: Spontaneous
  Country: JP (occurrence: JP)
  Receive Date: 20250722
  Receipt Date: 20251024
  Transmission Date: 20260118
  Serious: Yes (Hospitalization, Disabling)
  Sender: IPSEN BIOPHARMACEUTICALS, INC.
  Company Number: JP-IPSEN Group, Research and Development-2025-17737

PATIENT
  Age: 72 Year
  Sex: Male

DRUGS (7)
  1. LANREOTIDE ACETATE [Suspect]
     Active Substance: LANREOTIDE ACETATE
     Indication: Neuroendocrine tumour of the rectum
     Dosage: DEEP SUBCUTANEOUS, INTRAVENOUS
     Route: 058
     Dates: start: 20250424
  2. LANREOTIDE ACETATE [Suspect]
     Active Substance: LANREOTIDE ACETATE
     Dosage: DEEP SUBCUTANEOUS, INTRAVENOUS
     Route: 058
     Dates: start: 20250522
  3. LANREOTIDE ACETATE [Suspect]
     Active Substance: LANREOTIDE ACETATE
     Dosage: DEEP SUBCUTANEOUS, INTRAVENOUS
     Route: 058
     Dates: start: 20250619, end: 20250629
  4. CELECOXIB [Suspect]
     Active Substance: CELECOXIB
     Indication: Rotator cuff syndrome
     Dates: start: 20250619, end: 20250629
  5. MIYA-BM [Concomitant]
     Active Substance: CLOSTRIDIUM BUTYRICUM SPORES STRAIN M-55
     Indication: Diarrhoea
     Dosage: (CLOSTRIDIUM BUTYRICUM) 60 MILLIGRAM/DAY PO DIARRHOEA NI-NI
     Route: 048
  6. JANUVIA [Concomitant]
     Active Substance: SITAGLIPTIN PHOSPHATE
     Indication: Type 2 diabetes mellitus
     Dosage: SITAGLIPTIN PHOSPHATE HYDRATE) 50 MILLIGRAM/DAY PO TYPE 2 DIABETES MELLITUS NI-N
     Route: 048
  7. LOXOPROFEN [Concomitant]
     Active Substance: LOXOPROFEN
     Indication: Rotator cuff syndrome
     Dosage: (LOXOPROFEN SODIUM HYDRATE) 60 MG AS NEEDED PO ROTATOR CUFF TEAR
     Route: 048

REACTIONS (1)
  - Liver function test abnormal [Recovering/Resolving]

NARRATIVE: CASE EVENT DATE: 20250629
